FAERS Safety Report 8084913-8 (Version None)
Quarter: 2012Q1

REPORT INFORMATION
  Report Type: 
  Country: None (occurrence: None)
  Receive Date: 20120128
  Receipt Date: 20110325
  Transmission Date: 20120608
  Serious: No
  Sender: FDA-Public Use
  Company Number: US-ABBOTT-11P-163-0714677-00

PATIENT
  Sex: Female
  Weight: 90.8 kg

DRUGS (14)
  1. POTASSIUM [Concomitant]
     Indication: PRODUCT USED FOR UNKNOWN INDICATION
  2. SYNTHROID [Concomitant]
     Indication: PRODUCT USED FOR UNKNOWN INDICATION
  3. DIFOTAN [Concomitant]
     Indication: FUNGAL INFECTION
  4. HUMIRA [Suspect]
     Indication: PSORIASIS
     Dates: start: 20110309
  5. SUDAFED 12 HOUR [Concomitant]
     Indication: PRODUCT USED FOR UNKNOWN INDICATION
  6. FLEXERIL [Concomitant]
     Indication: BACK DISORDER
  7. VITAMIN D [Concomitant]
     Indication: PRODUCT USED FOR UNKNOWN INDICATION
  8. TOPAMAX [Concomitant]
     Indication: MIGRAINE PROPHYLAXIS
  9. BUTTERBUR [Concomitant]
     Indication: PRODUCT USED FOR UNKNOWN INDICATION
  10. ATIVAN [Concomitant]
     Indication: PRODUCT USED FOR UNKNOWN INDICATION
     Dosage: .0-1
  11. BUMEX [Concomitant]
     Indication: PRODUCT USED FOR UNKNOWN INDICATION
  12. SINEQUAN [Concomitant]
     Indication: ANXIETY
  13. CYMBALTA [Concomitant]
     Indication: DEPRESSION
  14. ADDERALL 5 [Concomitant]
     Indication: ATTENTION DEFICIT/HYPERACTIVITY DISORDER

REACTIONS (4)
  - INJECTION SITE PAIN [None]
  - DEVICE MALFUNCTION [None]
  - PAIN [None]
  - INJECTION SITE HAEMATOMA [None]
